FAERS Safety Report 25846116 (Version 1)
Quarter: 2025Q3

REPORT INFORMATION
  Report Type: Spontaneous
  Country: EU (occurrence: EU)
  Receive Date: 20250925
  Receipt Date: 20250925
  Transmission Date: 20251020
  Serious: Yes (Other)
  Sender: BAYER HEALTHCARE PHARMACEUTICALS INC.
  Company Number: EU-BAYER-2025A123427

PATIENT
  Age: 77 Year
  Sex: Male

DRUGS (1)
  1. FINERENONE [Suspect]
     Active Substance: FINERENONE
     Indication: Renal failure

REACTIONS (5)
  - Renal impairment [None]
  - Blood creatinine decreased [None]
  - Glomerular filtration rate decreased [None]
  - Product use in unapproved indication [None]
  - Underdose [None]
